FAERS Safety Report 9064895 (Version 1)
Quarter: 2013Q1

REPORT INFORMATION
  Report Type: Spontaneous
  Country: CO (occurrence: CO)
  Receive Date: 20130206
  Receipt Date: 20130206
  Transmission Date: 20140127
  Serious: Yes (Death)
  Sender: FDA-Public Use
  Company Number: CO-BRISTOL-MYERS SQUIBB COMPANY-17347550

PATIENT
  Sex: Female

DRUGS (1)
  1. IXEMPRA [Suspect]

REACTIONS (1)
  - Death [Fatal]
